FAERS Safety Report 4870964-0 (Version None)
Quarter: 2005Q4

REPORT INFORMATION
  Report Type: 
  Country: None (occurrence: None)
  Receive Date: 20051228
  Receipt Date: 20051207
  Transmission Date: 20060501
  Serious: Yes (Hospitalization, Other)
  Sender: FDA-Public Use
  Company Number: USA050699958

PATIENT
  Age: 83 Year
  Sex: Female

DRUGS (9)
  1. FORTEO [Suspect]
     Indication: OSTEOPOROSIS
     Dates: start: 20050115
  2. NAMENDA (MEMANTINE HYDROHLORIDE0 [Concomitant]
  3. ARICEPT (CONEPEZIL HYDROCHLORIDE) [Concomitant]
  4. PALVIX (CLOPIDOGREL SULFATE) [Concomitant]
  5. ASPIRIN [Concomitant]
  6. LIPITOR [Concomitant]
  7. CITRAAL WITH VITAMIN D [Concomitant]
  8. CRANBERRY (CRANBERRY) [Concomitant]
  9. FORTEO [Concomitant]

REACTIONS (3)
  - PHARMACEUTICAL PRODUCT COMPLAINT [None]
  - SOMNOLENCE [None]
  - TRANSIENT ISCHAEMIC ATTACK [None]
